FAERS Safety Report 8778631 (Version 2)
Quarter: 2013Q2

REPORT INFORMATION
  Report Type: Spontaneous
  Country: US (occurrence: US)
  Receive Date: 20120912
  Receipt Date: 20130404
  Transmission Date: 20140414
  Serious: No
  Sender: FDA-Public Use
  Company Number: US-BAYER-2012-094967

PATIENT
  Age: 25 Year
  Sex: Female

DRUGS (1)
  1. MIRENA [Suspect]
     Indication: CONTRACEPTION
     Dosage: 20 MCG/24HR, CONT
     Route: 015
     Dates: start: 20120516, end: 20120611

REACTIONS (5)
  - Pain [None]
  - Abdominal pain lower [None]
  - Pelvic pain [None]
  - Dyspareunia [None]
  - Medical device discomfort [None]
